FAERS Safety Report 6215672-9 (Version None)
Quarter: 2009Q2

REPORT INFORMATION
  Report Type: 
  Country: None (occurrence: None)
  Receive Date: 20090603
  Receipt Date: 20090417
  Transmission Date: 20091009
  Serious: Yes (Hospitalization)
  Sender: FDA-Public Use
  Company Number: 14448823

PATIENT
  Age: 49 Year
  Sex: Female

DRUGS (5)
  1. ABATACEPT [Suspect]
     Indication: RHEUMATOID ARTHRITIS
     Dosage: 500 MILLIGRAM 4 WEEK IVD
     Route: 041
     Dates: start: 20070314, end: 20081118
  2. RHEUMATREX [Suspect]
     Indication: RHEUMATOID ARTHRITIS
     Dosage: 8 MILLIGRAM 1 WEEK ORAL
     Route: 048
  3. FOLIC ACID [Concomitant]
  4. FERROMIA (FERROUS SODIUM CITRATE) [Concomitant]
  5. CLOBETASOL PROPIONATE [Concomitant]

REACTIONS (2)
  - BREAST CANCER FEMALE [None]
  - SKIN DISORDER [None]
